FAERS Safety Report 24370329 (Version 2)
Quarter: 2025Q4

REPORT INFORMATION
  Report Type: Report from Study
  Country: IN (occurrence: IN)
  Receive Date: 20240927
  Receipt Date: 20251031
  Transmission Date: 20260118
  Serious: Yes (Hospitalization)
  Sender: ROCHE
  Company Number: IN-ROCHE-10000086911

PATIENT
  Age: 42 Year
  Sex: Male

DRUGS (13)
  1. CELLCEPT [Suspect]
     Active Substance: MYCOPHENOLATE MOFETIL
     Indication: Renal transplant
     Route: 048
     Dates: start: 20180402
  2. PREDNISOLONE [Concomitant]
     Active Substance: PREDNISOLONE
  3. TACROLIMUS [Concomitant]
     Active Substance: TACROLIMUS
  4. TACROLIMUS [Concomitant]
     Active Substance: TACROLIMUS
  5. RAMIPRIL [Concomitant]
     Active Substance: RAMIPRIL
  6. RANITIDINE HYDROCHLORIDE [Concomitant]
     Active Substance: RANITIDINE HYDROCHLORIDE
  7. FOLVITE [Concomitant]
     Active Substance: FOLIC ACID
  8. AZITHROMYCIN DIHYDRATE [Concomitant]
     Active Substance: AZITHROMYCIN DIHYDRATE
     Route: 048
  9. MOXIFLOXACIN [Concomitant]
     Active Substance: MOXIFLOXACIN
  10. INH [Concomitant]
     Active Substance: ISONIAZID
  11. ETHAMBUTOL [Concomitant]
     Active Substance: ETHAMBUTOL HYDROCHLORIDE
  12. PYRAZINAMIDE [Concomitant]
     Active Substance: PYRAZINAMIDE
  13. PRIMIDONE [Concomitant]
     Active Substance: PRIMIDONE
     Dosage: 1/2 TABLET

REACTIONS (4)
  - Metabolic acidosis [Recovered/Resolved]
  - Iron deficiency anaemia [Recovered/Resolved]
  - Bradycardia [Unknown]
  - Pulmonary tuberculosis [Unknown]

NARRATIVE: CASE EVENT DATE: 20240910
